FAERS Safety Report 18680515 (Version 2)
Quarter: 2021Q1

REPORT INFORMATION
  Report Type: Report from Study
  Country: CA (occurrence: CA)
  Receive Date: 20201230
  Receipt Date: 20210112
  Transmission Date: 20210419
  Serious: Yes (Hospitalization)
  Sender: FDA-Public Use
  Company Number: CA-REGENERON PHARMACEUTICALS, INC.-2020-97389

PATIENT

DRUGS (1)
  1. EYLEA [Suspect]
     Active Substance: AFLIBERCEPT
     Indication: RETINAL VEIN OCCLUSION
     Dosage: DOSE, FREQUENCY AND TOTAL NUMBER OF DOSES NOT REPORTED
     Dates: start: 20171214

REACTIONS (2)
  - Musculoskeletal disorder [Unknown]
  - Leg amputation [Recovered/Resolved with Sequelae]
